FAERS Safety Report 7447872-4 (Version None)
Quarter: 2011Q2

REPORT INFORMATION
  Report Type: 
  Country: None (occurrence: None)
  Receive Date: 20110429
  Receipt Date: 20100318
  Transmission Date: 20111010
  Serious: No
  Sender: FDA-Public Use
  Company Number: US-ASTRAZENECA-2010SE12064

PATIENT
  Age: 77 Year
  Sex: Female

DRUGS (10)
  1. BENICAR HCT [Concomitant]
  2. PLAVIX [Concomitant]
  3. LOVASTATIN [Concomitant]
  4. NEXIUM [Suspect]
     Indication: BARRETT'S OESOPHAGUS
     Route: 048
     Dates: start: 19970101
  5. FOLIC ACID [Concomitant]
  6. ASPIRIN [Concomitant]
  7. ATENOLOL [Concomitant]
  8. POTASSIUM [Concomitant]
  9. FELODIPINE [Concomitant]
  10. LOVAZA [Concomitant]

REACTIONS (2)
  - INCORRECT DOSE ADMINISTERED [None]
  - BARRETT'S OESOPHAGUS [None]
